FAERS Safety Report 6345119-3 (Version None)
Quarter: 2009Q3

REPORT INFORMATION
  Report Type: 
  Country: None (occurrence: None)
  Receive Date: 20090909
  Receipt Date: 20070807
  Transmission Date: 20100115
  Serious: Yes (Other)
  Sender: FDA-Public Use
  Company Number: US-ASTRAZENECA-2006UW25523

PATIENT
  Age: 644 Month
  Sex: Male
  Weight: 110.2 kg

DRUGS (33)
  1. SEROQUEL [Suspect]
     Indication: BIPOLAR DISORDER
     Dosage: 50 MG - 150 MG AT NIGHT
     Route: 048
     Dates: start: 20040907, end: 20050401
  2. SEROQUEL [Suspect]
     Indication: NIGHTMARE
     Dosage: 50 MG - 150 MG AT NIGHT
     Route: 048
     Dates: start: 20040907, end: 20050401
  3. SEROQUEL [Suspect]
     Indication: FLASHBACK
     Dosage: 50 MG - 150 MG AT NIGHT
     Route: 048
     Dates: start: 20040907, end: 20050401
  4. SEROQUEL [Suspect]
     Indication: HALLUCINATION, VISUAL
     Dosage: 50 MG - 150 MG AT NIGHT
     Route: 048
     Dates: start: 20040907, end: 20050401
  5. SEROQUEL [Suspect]
     Indication: PARANOIA
     Dosage: 50 MG - 150 MG AT NIGHT
     Route: 048
     Dates: start: 20040907, end: 20050401
  6. SEROQUEL [Suspect]
     Indication: THINKING ABNORMAL
     Dosage: 50 MG - 150 MG AT NIGHT
     Route: 048
     Dates: start: 20040907, end: 20050401
  7. SEROQUEL [Suspect]
     Indication: ANXIETY
     Dosage: 50 MG - 150 MG AT NIGHT
     Route: 048
     Dates: start: 20040907, end: 20050401
  8. SEROQUEL [Suspect]
     Route: 048
     Dates: start: 20040901, end: 20050201
  9. SEROQUEL [Suspect]
     Route: 048
     Dates: start: 20040901, end: 20050201
  10. SEROQUEL [Suspect]
     Route: 048
     Dates: start: 20040901, end: 20050201
  11. SEROQUEL [Suspect]
     Route: 048
     Dates: start: 20040901, end: 20050201
  12. SEROQUEL [Suspect]
     Route: 048
     Dates: start: 20040901, end: 20050201
  13. SEROQUEL [Suspect]
     Route: 048
     Dates: start: 20040901, end: 20050201
  14. SEROQUEL [Suspect]
     Route: 048
     Dates: start: 20040901, end: 20050201
  15. TRAZODONE HCL [Concomitant]
     Dosage: 150 MG
  16. PRILOSEC [Concomitant]
     Indication: GASTROOESOPHAGEAL REFLUX DISEASE
     Route: 048
     Dates: start: 20040907
  17. PRILOSEC [Concomitant]
     Indication: ABDOMINAL DISCOMFORT
     Route: 048
     Dates: start: 20040907
  18. COLCHICINE [Concomitant]
     Dosage: 0.6-1.8 MG DAILY
     Route: 048
     Dates: start: 19980615
  19. LISINOPRIL [Concomitant]
     Indication: BLOOD PRESSURE ABNORMAL
     Dosage: 20-40 MG DAILY
     Route: 048
     Dates: start: 19980615
  20. IBUPROFEN [Concomitant]
     Indication: INFLAMMATION
     Dosage: 1600 - 2400 MG
     Route: 048
     Dates: start: 19980615
  21. IBUPROFEN [Concomitant]
     Indication: PAIN
     Dosage: 1600 - 2400 MG
     Route: 048
     Dates: start: 19980615
  22. FLEXERIL [Concomitant]
     Dosage: 10-30 MG
     Route: 048
     Dates: start: 19980615
  23. ZOCOR [Concomitant]
     Indication: BLOOD CHOLESTEROL
     Dosage: 10 - 120 MG DAILY
     Route: 048
     Dates: start: 19980615
  24. ELAVIL [Concomitant]
     Dates: start: 19900101
  25. IRBESARTAN [Concomitant]
     Indication: BLOOD PRESSURE ABNORMAL
     Route: 048
     Dates: start: 20050314, end: 20060815
  26. TRAZODONE HYDROCHLORIDE [Concomitant]
     Indication: SLEEP DISORDER
     Route: 048
     Dates: start: 20060815
  27. TRAZODONE HYDROCHLORIDE [Concomitant]
     Indication: DEPRESSION
     Route: 048
     Dates: start: 20060815
  28. TRAZODONE HYDROCHLORIDE [Concomitant]
     Indication: ANXIETY
     Route: 048
     Dates: start: 20060815
  29. CELECOXIB [Concomitant]
     Indication: PAIN
     Route: 048
     Dates: start: 20050317
  30. FEXOFENADINE HYDROCHLORIDE [Concomitant]
     Indication: HYPERSENSITIVITY
     Route: 048
     Dates: start: 20050317
  31. BUPROPION HYDROCHLORIDE [Concomitant]
     Indication: DEPRESSION
     Dosage: 100-150 MG EVERY MORNING
     Route: 048
     Dates: start: 19940101
  32. BUPROPION HYDROCHLORIDE [Concomitant]
     Indication: SMOKING CESSATION THERAPY
     Dosage: 100-150 MG EVERY MORNING
     Route: 048
     Dates: start: 19940101
  33. PROBENECID [Concomitant]
     Route: 048
     Dates: start: 20040907

REACTIONS (6)
  - BLOOD GLUCOSE INCREASED [None]
  - DIABETES MELLITUS [None]
  - DIABETIC KETOACIDOSIS [None]
  - DIABETIC NEUROPATHY [None]
  - TYPE 2 DIABETES MELLITUS [None]
  - VISION BLURRED [None]
